FAERS Safety Report 9649100 (Version 1)
Quarter: 2013Q4

REPORT INFORMATION
  Report Type: Spontaneous
  Country: US (occurrence: None)
  Receive Date: 20131018
  Receipt Date: 20131018
  Transmission Date: 20140711
  Serious: No
  Sender: FDA-Public Use
  Company Number: AEGR000130

PATIENT
  Age: 68 Year
  Sex: Female
  Weight: 66.68 kg

DRUGS (11)
  1. JUXTAPID [Suspect]
     Indication: TYPE IIA HYPERLIPIDAEMIA
     Route: 048
     Dates: start: 201306, end: 20130813
  2. CRESTOR (ROSUVASTATIN CALCIUM) TABLET [Concomitant]
  3. AMLODIPINE (AMLODIPINE MALEATE) TABLET [Concomitant]
  4. KLOR-CON (POTASSIUM CHLORIDE) UNKNOWN [Concomitant]
  5. LASIX (FUROSEMIDE) TABLET [Concomitant]
  6. LEVOTHYROXINE (LEVOTHYROXINE SODIUM) TABLET [Concomitant]
  7. LORTAB (HYDROCODONE BITARTRATE, PARACETAMOL, PROMETHAZINE HYDROCHLORIDE) SOLUTION [Concomitant]
  8. METOPROLOL (METOPROLOL SUCCINATE) TABLET [Concomitant]
  9. PLAVIX (CLOPIDOGREL BISULFATE) TABLET [Concomitant]
  10. XANAX (ALPRAZOLAM) TABLET [Concomitant]
  11. ASA (ASA) TABLET [Concomitant]

REACTIONS (1)
  - Diarrhoea [None]
